FAERS Safety Report 7311869-5 (Version None)
Quarter: 2011Q1

REPORT INFORMATION
  Report Type: 
  Country: None (occurrence: None)
  Receive Date: 20110215
  Receipt Date: 20110215
  Transmission Date: 20110831
  Serious: No
  Sender: FDA-Public Use
  Company Number: None

PATIENT
  Sex: Female
  Weight: 58.9676 kg

DRUGS (2)
  1. BUPROPION HCL [Suspect]
     Dosage: 300MG QD PO
     Route: 048
  2. BUPROPION HCL [Suspect]
     Indication: MAJOR DEPRESSION

REACTIONS (3)
  - PRODUCT SUBSTITUTION ISSUE [None]
  - DEPRESSION [None]
  - CONDITION AGGRAVATED [None]
